FAERS Safety Report 10052964 (Version 1)
Quarter: 2014Q2

REPORT INFORMATION
  Report Type: Spontaneous
  Country: US (occurrence: US)
  Receive Date: 20140402
  Receipt Date: 20140402
  Transmission Date: 20141212
  Serious: No
  Sender: FDA-Public Use
  Company Number: US-MALLINCKRODT-T201401439

PATIENT
  Age: 51 Year
  Sex: Male

DRUGS (5)
  1. METHYLPHENIDATE HYDROCHLORIDE EXTENDED RELEASE TABLETS [Suspect]
     Indication: ATTENTION DEFICIT/HYPERACTIVITY DISORDER
     Dosage: 36 MG, QD
     Route: 048
     Dates: start: 20140207, end: 20140225
  2. BUSPAR [Concomitant]
     Indication: MOOD ALTERED
     Dosage: 7.5MG BID
     Route: 048
     Dates: start: 2008
  3. BUSPAR [Concomitant]
     Indication: DISTURBANCE IN ATTENTION
  4. ANDROGEL [Concomitant]
     Indication: HORMONE REPLACEMENT THERAPY
     Dosage: 1.75 MG; 2 PUMPS, QD
     Route: 061
     Dates: start: 2009
  5. METHYLPHENIDATE [Concomitant]
     Indication: ATTENTION DEFICIT/HYPERACTIVITY DISORDER
     Dosage: 36 MG QD
     Dates: end: 20140206

REACTIONS (7)
  - Fatigue [Recovered/Resolved]
  - Palpitations [Recovered/Resolved]
  - Headache [Recovered/Resolved]
  - Pain of skin [Recovering/Resolving]
  - Hypersomnia [Recovered/Resolved]
  - Drug effect increased [Recovered/Resolved]
  - Drug ineffective [Recovered/Resolved]
